FAERS Safety Report 4352778-3 (Version None)
Quarter: 2004Q2

REPORT INFORMATION
  Report Type: 
  Country: None (occurrence: None)
  Receive Date: 20040429
  Receipt Date: 20040415
  Transmission Date: 20050107
  Serious: Yes (Hospitalization)
  Sender: FDA-Public Use
  Company Number: US-SHR-04-022046

PATIENT
  Age: 60 Year
  Sex: Female
  Weight: 45.4 kg

DRUGS (7)
  1. BETASERON [Suspect]
     Indication: MULTIPLE SCLEROSIS
     Dosage: 8 MIU, EVERY 2D, SUBCUTANEOUS
     Route: 058
     Dates: start: 19930901, end: 20040216
  2. LABETALOL HCL [Concomitant]
  3. TRIAMTERENE [Concomitant]
  4. SOLU-MEDROL (METHYLREDNISOLONE SODIUM SUCCINATE) [Concomitant]
  5. TIZANIDINE HCL [Concomitant]
  6. LEVOXYL [Concomitant]
  7. PREMPRO [Concomitant]

REACTIONS (6)
  - BLOOD PRESSURE FLUCTUATION [None]
  - DERMATITIS EXFOLIATIVE [None]
  - ERYTHEMA [None]
  - HYPERTENSION [None]
  - INJECTION SITE REACTION [None]
  - RENAL FAILURE [None]
